FAERS Safety Report 5121882-4 (Version None)
Quarter: 2006Q4

REPORT INFORMATION
  Report Type: 
  Country: None (occurrence: None)
  Receive Date: 20061006
  Receipt Date: 20060824
  Transmission Date: 20070319
  Serious: Yes (Death, Hospitalization)
  Sender: FDA-Public Use
  Company Number: JP-MERCK-0608USA06379

PATIENT
  Age: 76 Year
  Sex: Male
  Weight: 62 kg

DRUGS (16)
  1. PROPECIA [Suspect]
     Indication: ALOPECIA
     Route: 048
     Dates: start: 20060728
  2. [THERAPY UNSPECIFIED] [Concomitant]
     Indication: CHEMICAL POISONING
     Route: 065
     Dates: start: 20050701
  3. PERSANTIN [Concomitant]
     Indication: ANGINA PECTORIS
     Route: 042
     Dates: start: 20050707
  4. AMLODIN [Concomitant]
     Indication: ANGINA PECTORIS
     Route: 048
     Dates: start: 20050701
  5. AMLODIN [Concomitant]
     Route: 048
     Dates: start: 20060306
  6. AMLODIN [Concomitant]
     Indication: HEART RATE IRREGULAR
     Route: 048
     Dates: start: 20050701
  7. AMLODIN [Concomitant]
     Route: 048
     Dates: start: 20060306
  8. ASPIRIN [Concomitant]
     Indication: ANGINA PECTORIS
     Route: 048
     Dates: start: 20060306
  9. MEILAX [Concomitant]
     Indication: PSYCHOSOMATIC DISEASE
     Route: 048
     Dates: start: 20051130
  10. UBIDECARENONE [Concomitant]
     Indication: CARDIAC FAILURE
     Route: 048
     Dates: start: 20050701
  11. MICARDIS [Concomitant]
     Indication: HYPERTENSION
     Route: 048
     Dates: start: 20051130
  12. MERISLON [Concomitant]
     Indication: DIZZINESS
     Route: 048
     Dates: start: 20060804
  13. ALINAMIN [Concomitant]
     Route: 048
     Dates: start: 20060801
  14. KAKKON-TO [Concomitant]
     Indication: NASOPHARYNGITIS
     Route: 048
     Dates: start: 20051105
  15. LOXONIN [Concomitant]
     Indication: ANALGESIC EFFECT
     Route: 048
     Dates: start: 20060323
  16. [THERAPY UNSPECIFIED] [Concomitant]
     Indication: GASTRIC DISORDER
     Route: 048
     Dates: start: 20050226

REACTIONS (1)
  - ACUTE LEUKAEMIA [None]
